FAERS Safety Report 4995594-1 (Version None)
Quarter: 2006Q2

REPORT INFORMATION
  Report Type: 
  Country: None (occurrence: None)
  Receive Date: 20060504
  Receipt Date: 20060425
  Transmission Date: 20061013
  Serious: Yes (Hospitalization)
  Sender: FDA-Public Use
  Company Number: 2006056735

PATIENT
  Sex: Female

DRUGS (8)
  1. XANAX [Suspect]
     Indication: ILL-DEFINED DISORDER
  2. TRAZODONE HCL [Suspect]
     Indication: ILL-DEFINED DISORDER
  3. LUNESTA [Suspect]
     Indication: ILL-DEFINED DISORDER
     Dosage: 2 MG (2 MG, 1 IN 1 D), ORAL
     Route: 048
     Dates: start: 20051117
  4. RESTORIL [Suspect]
     Indication: ILL-DEFINED DISORDER
  5. AMBIEN [Suspect]
     Indication: ILL-DEFINED DISORDER
  6. VALERIANA OFFICINALIS (VALERIANA OFFICINALIS) [Suspect]
     Indication: ILL-DEFINED DISORDER
  7. MELATONIN (MELATONIN) [Concomitant]
  8. ALL OTHER THERAPEUTIC PRODUCTS (ALL OTHER THERAPEUTIC PRODUCTS) [Concomitant]

REACTIONS (3)
  - DRUG INEFFECTIVE [None]
  - INSOMNIA [None]
  - SOMNOLENCE [None]
